FAERS Safety Report 5784303-4 (Version None)
Quarter: 2008Q2

REPORT INFORMATION
  Report Type: 
  Country: None (occurrence: None)
  Receive Date: 20080605
  Receipt Date: 20080402
  Transmission Date: 20081010
  Serious: No
  Sender: FDA-Public Use
  Company Number: A0718922A

PATIENT
  Age: 56 Year
  Sex: Male

DRUGS (3)
  1. ALLI [Suspect]
     Dates: start: 20080202
  2. CINNAMON [Concomitant]
  3. FISH OIL [Concomitant]

REACTIONS (5)
  - BACK PAIN [None]
  - DRUG INEFFECTIVE [None]
  - DRUG INTERACTION [None]
  - HUNGER [None]
  - MUSCULOSKELETAL PAIN [None]
